FAERS Safety Report 7285734-6 (Version None)
Quarter: 2011Q1

REPORT INFORMATION
  Report Type: 
  Country: None (occurrence: None)
  Receive Date: 20110210
  Receipt Date: 20100317
  Transmission Date: 20110831
  Serious: Yes (Death, Hospitalization, Other)
  Sender: FDA-Public Use
  Company Number: US-AMGEN-QUU390920

PATIENT
  Age: 34 Year
  Sex: Male

DRUGS (4)
  1. GRANULOCYTE COLONY STIMULATING FACTOR [Concomitant]
     Dosage: 480 A?G, QD
  2. EPOGEN [Concomitant]
     Dosage: 10000 IU, QD
     Route: 058
  3. NPLATE [Suspect]
     Indication: IDIOPATHIC THROMBOCYTOPENIC PURPURA
     Dosage: 480 A?G, QWK
     Route: 058
     Dates: start: 20090122, end: 20090406
  4. PREDNISONE [Concomitant]

REACTIONS (4)
  - ACUTE MYELOID LEUKAEMIA [None]
  - PYREXIA [None]
  - GINGIVAL BLEEDING [None]
  - DRUG INEFFECTIVE [None]
